FAERS Safety Report 6038106-6 (Version None)
Quarter: 2009Q1

REPORT INFORMATION
  Report Type: 
  Country: None (occurrence: None)
  Receive Date: 20090113
  Receipt Date: 20090113
  Transmission Date: 20090719
  Serious: Yes (Other)
  Sender: FDA-Public Use
  Company Number: None

PATIENT
  Age: 52 Year
  Sex: Female
  Weight: 74.8435 kg

DRUGS (1)
  1. PREVACID [Suspect]
     Indication: GASTROOESOPHAGEAL REFLUX DISEASE
     Dosage: 1 PER DAY PO
     Route: 048
     Dates: start: 20081113, end: 20081213

REACTIONS (1)
  - ALOPECIA [None]
